FAERS Safety Report 7082478-0 (Version None)
Quarter: 2010Q3

REPORT INFORMATION
  Report Type: 
  Country: None (occurrence: None)
  Receive Date: 20100929
  Receipt Date: 20100617
  Transmission Date: 20110219
  Serious: No
  Sender: FDA-Public Use
  Company Number: US-WYE-H15772810

PATIENT
  Age: 29 Year
  Sex: Female
  Weight: 124.85 kg

DRUGS (4)
  1. PRISTIQ [Suspect]
     Indication: HEADACHE
     Dosage: 50 MG 1X PER 1 DAY, ORAL
     Route: 048
     Dates: start: 20100401, end: 20100612
  2. TOPAMAX [Suspect]
  3. METFORMIN HCL [Concomitant]
  4. LISINOPRIL [Concomitant]

REACTIONS (13)
  - ANXIETY [None]
  - CLAUSTROPHOBIA [None]
  - CONDITION AGGRAVATED [None]
  - DEPRESSED MOOD [None]
  - DIARRHOEA [None]
  - DRUG WITHDRAWAL SYNDROME [None]
  - FATIGUE [None]
  - FEELING ABNORMAL [None]
  - HYPERHIDROSIS [None]
  - MEMORY IMPAIRMENT [None]
  - NAUSEA [None]
  - NERVOUSNESS [None]
  - RESTLESSNESS [None]
